FAERS Safety Report 22654212 (Version 1)
Quarter: 2023Q2

REPORT INFORMATION
  Report Type: Spontaneous
  Country: US (occurrence: US)
  Receive Date: 20230629
  Receipt Date: 20230629
  Transmission Date: 20230722
  Serious: No
  Sender: FDA-Public Use
  Company Number: US-AMNEAL PHARMACEUTICALS-2023-AMRX-00696

PATIENT
  Age: 71 Year
  Sex: Female

DRUGS (6)
  1. NITROFURANTOIN [Suspect]
     Active Substance: NITROFURANTOIN
     Indication: Product used for unknown indication
     Route: 065
  2. METFORMIN HYDROCHLORIDE [Suspect]
     Active Substance: METFORMIN HYDROCHLORIDE
     Indication: Product used for unknown indication
     Route: 065
  3. LENVIMA [Concomitant]
     Active Substance: LENVATINIB
     Indication: Endometrial cancer
     Dosage: 20 MILLIGRAM
     Route: 065
     Dates: start: 20220804, end: 20220914
  4. LENVIMA [Concomitant]
     Active Substance: LENVATINIB
     Dosage: 10 MILLIGRAM
     Route: 065
     Dates: start: 20220926
  5. JANUMET [Concomitant]
     Active Substance: METFORMIN HYDROCHLORIDE\SITAGLIPTIN PHOSPHATE
     Indication: Diabetes mellitus
     Route: 065
  6. GLIMEPIRIDE [Concomitant]
     Active Substance: GLIMEPIRIDE
     Indication: Diabetes mellitus
     Route: 065

REACTIONS (4)
  - Cystitis [Unknown]
  - Thyroid disorder [Unknown]
  - Urinary tract infection [Unknown]
  - Vomiting [Recovered/Resolved]

NARRATIVE: CASE EVENT DATE: 20230101
